FAERS Safety Report 21724340 (Version 1)
Quarter: 2022Q4

REPORT INFORMATION
  Report Type: Spontaneous
  Country: DE (occurrence: DE)
  Receive Date: 20221213
  Receipt Date: 20221213
  Transmission Date: 20230113
  Serious: Yes (Other)
  Sender: FDA-Public Use
  Company Number: DE-BAYER-2022A167786

PATIENT
  Sex: Male

DRUGS (12)
  1. XARELTO [Suspect]
     Active Substance: RIVAROXABAN
     Indication: Product used for unknown indication
     Dosage: 20 MG, QD
     Route: 048
     Dates: start: 2017
  2. BISOPROLOL FUMARATE [Concomitant]
     Active Substance: BISOPROLOL FUMARATE
     Indication: Coronary artery disease
     Dosage: 5 MG, BID
  3. CANDESARTAN [Concomitant]
     Active Substance: CANDESARTAN
     Indication: Coronary artery disease
     Dosage: 10 MG, QD
  4. LEVOTHYROXINE SODIUM [Concomitant]
     Active Substance: LEVOTHYROXINE SODIUM
     Dosage: 50 UG, QD
  5. ALLOPURINOL [Concomitant]
     Active Substance: ALLOPURINOL
     Indication: Gout
     Dosage: 300 MG, QD
  6. ATORVASTATIN [Concomitant]
     Active Substance: ATORVASTATIN
     Dosage: 40 MG, QD
  7. METFORMIN [Concomitant]
     Active Substance: METFORMIN HYDROCHLORIDE
     Dosage: 850 MG, BID
  8. BROMAZEP [Concomitant]
     Dosage: 6 MG, PRN
  9. IBUPROFEN [Concomitant]
     Active Substance: IBUPROFEN
     Indication: Pain
     Dosage: 800 MG, PRN
  10. SILYMARIN LEBER [Concomitant]
     Dosage: 1 DF, BID
  11. NOBILIN Q10 [Concomitant]
     Dosage: 1 DF, QD
  12. NITROLINGUAL [Concomitant]
     Active Substance: NITROGLYCERIN

REACTIONS (5)
  - Skin reaction [Unknown]
  - Pruritus [Unknown]
  - Pustule [Unknown]
  - Sleep disorder [Unknown]
  - Depression [Unknown]
